FAERS Safety Report 4715070-0 (Version None)
Quarter: 2005Q3

REPORT INFORMATION
  Report Type: 
  Country: None (occurrence: None)
  Receive Date: 20050715
  Receipt Date: 20050704
  Transmission Date: 20060218
  Serious: Yes (Life-Threatening)
  Sender: FDA-Public Use
  Company Number: CR-BRISTOL-MYERS SQUIBB COMPANY-13024237

PATIENT
  Age: 55 Year
  Sex: Male
  Weight: 40 kg

DRUGS (4)
  1. VIDEX [Suspect]
     Indication: HIV INFECTION
     Route: 048
     Dates: start: 19990901, end: 20041101
  2. NELFINAVIR [Suspect]
     Dates: start: 19990901, end: 20041101
  3. ZIDOVUDINE [Suspect]
     Dates: start: 20000701, end: 20041101
  4. STAVUDINE [Concomitant]
     Dates: start: 19990901, end: 20000701

REACTIONS (4)
  - GASTROINTESTINAL HAEMORRHAGE [None]
  - LIVER DISORDER [None]
  - PORTAL HYPERTENSION [None]
  - VARICES OESOPHAGEAL [None]
